FAERS Safety Report 4447625-5 (Version None)
Quarter: 2004Q3

REPORT INFORMATION
  Report Type: 
  Country: None (occurrence: None)
  Receive Date: 20040823
  Receipt Date: 20040713
  Transmission Date: 20050211
  Serious: No
  Sender: FDA-Public Use
  Company Number: PHEH2004US07482

PATIENT
  Age: 68 Year
  Sex: Female

DRUGS (7)
  1. ZELNORM [Suspect]
     Indication: IRRITABLE BOWEL SYNDROME
     Dosage: SEE IMAGE
     Dates: start: 20040401
  2. PERCOCET [Concomitant]
  3. VALIUM [Concomitant]
  4. ZOLOFT [Concomitant]
  5. ESTROGENS CONJUGATED (ESOTROGENS CONJUGATED) [Concomitant]
  6. HYDROCHLOROTHIAZIDE [Concomitant]
  7. TRAZODONE HCL [Concomitant]

REACTIONS (4)
  - ABDOMINAL DISTENSION [None]
  - ARTHRALGIA [None]
  - CONSTIPATION [None]
  - MYALGIA [None]
